FAERS Safety Report 9010346 (Version 2)
Quarter: 2013Q1

REPORT INFORMATION
  Report Type: Spontaneous
  Country: US (occurrence: US)
  Receive Date: 20130109
  Receipt Date: 20130115
  Transmission Date: 20140127
  Serious: No
  Sender: FDA-Public Use
  Company Number: US-VERTEX PHARMACEUTICALS INC.-2013-000217

PATIENT
  Age: 13 Year
  Sex: Female

DRUGS (4)
  1. KALYDECO [Suspect]
     Indication: CYSTIC FIBROSIS
     Dosage: 150 MG, BID
     Route: 048
     Dates: start: 20120308
  2. ADVAIR [Concomitant]
     Indication: CYSTIC FIBROSIS
     Dosage: UNK
  3. ALBUTEROL                          /00139501/ [Concomitant]
     Indication: CYSTIC FIBROSIS
     Dosage: UNK, PRN
  4. ENZYMES [Concomitant]
     Indication: CYSTIC FIBROSIS
     Dosage: UNK

REACTIONS (1)
  - Pruritus [Recovered/Resolved]
